FAERS Safety Report 9947254 (Version 1)
Quarter: 2014Q1

REPORT INFORMATION
  Report Type: Report from Study
  Country: US (occurrence: US)
  Receive Date: 20140303
  Receipt Date: 20140303
  Transmission Date: 20141002
  Serious: No
  Sender: FDA-Public Use
  Company Number: US-ABBVIE-13P-163-1065040-00

PATIENT
  Age: 41 Year
  Sex: Male

DRUGS (7)
  1. HUMIRA [Suspect]
     Indication: COLITIS ULCERATIVE
     Dates: start: 20121012
  2. VALACYCLOVIR [Concomitant]
     Indication: HERPES ZOSTER
     Dosage: 500 MG DAILY
  3. WARFARIN [Concomitant]
     Indication: NEPHROPATHY
     Dosage: 7 MG DAILY
  4. PREDNISONE [Concomitant]
     Indication: PRODUCT USED FOR UNKNOWN INDICATION
     Dosage: 1 MG DAILY WEANING OFF
  5. LISINOPRIL [Concomitant]
     Indication: PRODUCT USED FOR UNKNOWN INDICATION
     Dosage: 10 MG DAILY
  6. BACTRIM [Concomitant]
     Indication: PRODUCT USED FOR UNKNOWN INDICATION
     Dosage: 400/80 EVERY MONDAY, WEDNESDAY + FRIDAY
  7. LEXAPRO [Concomitant]
     Indication: ANXIETY
     Dosage: 20 MG DAILY

REACTIONS (2)
  - Myalgia [Not Recovered/Not Resolved]
  - Arthralgia [Not Recovered/Not Resolved]
